FAERS Safety Report 9463038 (Version 1)
Quarter: 2013Q3

REPORT INFORMATION
  Report Type: Report from Study
  Country: US (occurrence: US)
  Receive Date: 20130816
  Receipt Date: 20130816
  Transmission Date: 20140515
  Serious: Yes (Hospitalization)
  Sender: FDA-Public Use
  Company Number: US-ABBOTT-13P-163-1134596-00

PATIENT
  Age: 30 Year
  Sex: Female

DRUGS (2)
  1. HUMIRA [Suspect]
     Indication: PSORIATIC ARTHROPATHY
     Route: 058
  2. PNV [Concomitant]
     Indication: VITAMIN SUPPLEMENTATION
     Dosage: DAILY
     Dates: start: 200810, end: 20090601

REACTIONS (1)
  - Premature labour [Recovered/Resolved]
